FAERS Safety Report 7058946-4 (Version None)
Quarter: 2010Q4

REPORT INFORMATION
  Report Type: 
  Country: None (occurrence: None)
  Receive Date: 20101024
  Receipt Date: 20101021
  Transmission Date: 20110411
  Serious: Yes (Hospitalization, Other)
  Sender: FDA-Public Use
  Company Number: CH-BRISTOL-MYERS SQUIBB COMPANY-15345101

PATIENT
  Age: 81 Year
  Sex: Male

DRUGS (12)
  1. SOTALOL HCL [Suspect]
     Route: 048
  2. METFORMIN HCL [Suspect]
     Indication: DIABETES MELLITUS
     Dosage: INTERRUPTED ON 26-SEP-2010
     Route: 048
  3. GLYBURIDE [Suspect]
     Indication: DIABETES MELLITUS
     Dosage: INTERRUPTED ON 26-SEP-2010
     Route: 048
  4. CIPROFLOXACIN HCL [Suspect]
     Indication: CHRONIC OBSTRUCTIVE PULMONARY DISEASE
     Route: 048
     Dates: start: 20100921, end: 20100926
  5. CLARITHROMYCIN [Suspect]
     Indication: CHRONIC OBSTRUCTIVE PULMONARY DISEASE
     Route: 048
     Dates: start: 20100921, end: 20100928
  6. ENALAPRIL MALEATE [Suspect]
     Route: 048
  7. SINTROM [Concomitant]
     Route: 048
  8. NORVASC [Concomitant]
     Route: 048
  9. TOREM [Concomitant]
     Route: 048
  10. SORTIS [Concomitant]
     Route: 048
  11. CYMBALTA [Concomitant]
     Route: 048
  12. AGOPTON [Concomitant]
     Route: 048

REACTIONS (3)
  - CHRONIC OBSTRUCTIVE PULMONARY DISEASE [None]
  - FALL [None]
  - HYPOGLYCAEMIA [None]
